FAERS Safety Report 21311009 (Version 1)
Quarter: 2022Q3

REPORT INFORMATION
  Report Type: Spontaneous
  Country: US (occurrence: None)
  Receive Date: 20220909
  Receipt Date: 20220909
  Transmission Date: 20221027
  Serious: No
  Sender: FDA-Public Use
  Company Number: US-ARIS GLOBAL-202112-2307

PATIENT
  Sex: Female

DRUGS (28)
  1. OXERVATE [Suspect]
     Active Substance: CENEGERMIN-BKBJ
     Indication: Neurotrophic keratopathy
     Route: 047
     Dates: start: 20211202
  2. OXERVATE [Suspect]
     Active Substance: CENEGERMIN-BKBJ
     Indication: Hypoaesthesia eye
  3. OXERVATE [Suspect]
     Active Substance: CENEGERMIN-BKBJ
     Indication: Ulcerative keratitis
  4. OLOPATADINE HYDROCHLORIDE [Concomitant]
     Active Substance: OLOPATADINE HYDROCHLORIDE
  5. OFLOXACIN [Concomitant]
     Active Substance: OFLOXACIN
  6. RESTASIS [Concomitant]
     Active Substance: CYCLOSPORINE
  7. AIMOVIG [Concomitant]
     Active Substance: ERENUMAB-AOOE
  8. OZEMPIC [Concomitant]
     Active Substance: SEMAGLUTIDE
     Dosage: 0.25 OR.5 PEN INJECTOR
  9. INDOMETHACIN [Concomitant]
     Active Substance: INDOMETHACIN
  10. DOCUSATE CALCIUM [Concomitant]
     Active Substance: DOCUSATE CALCIUM
  11. BLACK COHOSH [Concomitant]
     Active Substance: BLACK COHOSH
  12. VITAMINS [Concomitant]
     Active Substance: VITAMINS
  13. BUSPIRONE HCL [Concomitant]
     Active Substance: BUSPIRONE HYDROCHLORIDE
  14. METHOCARBAMOL [Concomitant]
     Active Substance: METHOCARBAMOL
  15. PROTONIX [Concomitant]
     Active Substance: PANTOPRAZOLE SODIUM
  16. LINZESS [Concomitant]
     Active Substance: LINACLOTIDE
  17. ROSUVASTATIN CALCIUM [Concomitant]
     Active Substance: ROSUVASTATIN CALCIUM
  18. RISPERIDONE [Concomitant]
     Active Substance: RISPERIDONE
  19. OXCARBAZEPINE [Concomitant]
     Active Substance: OXCARBAZEPINE
  20. TRAZODONE HCL [Concomitant]
     Active Substance: TRAZODONE HYDROCHLORIDE
  21. LORATADINE [Concomitant]
     Active Substance: LORATADINE
  22. MIRTAZAPINE [Concomitant]
     Active Substance: MIRTAZAPINE
  23. KLOR-CON M10 [Concomitant]
     Active Substance: POTASSIUM CHLORIDE
     Dosage: SUSTAINABLE ACTION
  24. VENLAFAXINE HCL [Concomitant]
     Active Substance: VENLAFAXINE HYDROCHLORIDE
  25. HYDROXYZINE HYDROCHLORIDE [Concomitant]
     Active Substance: HYDROXYZINE HYDROCHLORIDE
  26. NORTRIPTYLINE HYDROCHLORIDE [Concomitant]
     Active Substance: NORTRIPTYLINE HYDROCHLORIDE
  27. ZONISAMIDE [Concomitant]
     Active Substance: ZONISAMIDE
  28. FLUCONAZOLE [Concomitant]
     Active Substance: FLUCONAZOLE

REACTIONS (1)
  - Eye irritation [Unknown]
